FAERS Safety Report 25689949 (Version 2)
Quarter: 2025Q3

REPORT INFORMATION
  Report Type: Report from Study
  Country: US (occurrence: US)
  Receive Date: 20250818
  Receipt Date: 20250825
  Transmission Date: 20251020
  Serious: Yes (Other)
  Sender: MYLAN
  Company Number: US-MYLANLABS-2025M1069148

PATIENT
  Age: 37 Year
  Sex: Female

DRUGS (4)
  1. METHOTREXATE [Suspect]
     Active Substance: METHOTREXATE
     Indication: Systemic lupus erythematosus
     Dosage: UNK, QW (ONCE PER WEEK FOR 4-5 MONTHS)
  2. METHOTREXATE [Suspect]
     Active Substance: METHOTREXATE
     Dosage: UNK, INJECTION, QW (ONCE PER WEEK FOR 4-5 MONTHS)
  3. PREDNISONE [Suspect]
     Active Substance: PREDNISONE
     Indication: Systemic lupus erythematosus
  4. PREDNISONE [Suspect]
     Active Substance: PREDNISONE

REACTIONS (3)
  - Abdominal discomfort [Recovered/Resolved]
  - Drug ineffective for unapproved indication [Recovered/Resolved]
  - Adverse event [Recovered/Resolved]
